FAERS Safety Report 4426679-6 (Version None)
Quarter: 2004Q3

REPORT INFORMATION
  Report Type: 
  Country: None (occurrence: None)
  Receive Date: 20040816
  Receipt Date: 20040723
  Transmission Date: 20050211
  Serious: Yes (Hospitalization)
  Sender: FDA-Public Use
  Company Number: JP-MERCK-0407USA02512

PATIENT
  Age: 12 Year
  Sex: Female

DRUGS (1)
  1. PEPCID [Suspect]
     Indication: GASTRIC ULCER
     Route: 065

REACTIONS (1)
  - RENAL FAILURE CHRONIC [None]
